FAERS Safety Report 6455238-9 (Version None)
Quarter: 2009Q4

REPORT INFORMATION
  Report Type: 
  Country: None (occurrence: None)
  Receive Date: 20091119
  Receipt Date: 20091104
  Transmission Date: 20100525
  Serious: Yes (Other)
  Sender: FDA-Public Use
  Company Number: AUR-APL-2009-01269

PATIENT
  Age: 72 Year
  Sex: Male

DRUGS (8)
  1. LISINOPRIL [Suspect]
     Indication: CEREBROVASCULAR ACCIDENT
     Dosage: 5MG, DAILY, ORAL
     Route: 048
  2. SILDINAFIL CITRATE     (VIAGRA) [Suspect]
     Dosage: 50MG, ORAL
     Route: 048
  3. COLCHICINE [Suspect]
     Indication: ARTHRITIS
  4. TADALAFIL [Suspect]
  5. ALLOPURINOL [Concomitant]
  6. CLINORIL [Concomitant]
  7. ASPIRIN [Concomitant]
  8. FISH OIL [Concomitant]

REACTIONS (4)
  - ARTHRITIS [None]
  - DEAFNESS [None]
  - MALAISE [None]
  - VOMITING [None]
